FAERS Safety Report 8333379-9 (Version None)
Quarter: 2012Q2

REPORT INFORMATION
  Report Type: 
  Country: None (occurrence: None)
  Receive Date: 20120503
  Receipt Date: 20120425
  Transmission Date: 20120825
  Serious: Yes (Hospitalization)
  Sender: FDA-Public Use
  Company Number: CO-JNJFOC-20120302779

PATIENT
  Age: 28 Year
  Sex: Male

DRUGS (2)
  1. INVEGA SUSTENNA [Suspect]
     Indication: SCHIZOPHRENIA
     Route: 030
     Dates: start: 20120202
  2. INVEGA SUSTENNA [Suspect]
     Route: 030
     Dates: start: 20120102

REACTIONS (2)
  - ANTISOCIAL BEHAVIOUR [None]
  - AGGRESSION [None]
